FAERS Safety Report 4636583-6 (Version None)
Quarter: 2005Q2

REPORT INFORMATION
  Report Type: 
  Country: None (occurrence: None)
  Receive Date: 20050415
  Receipt Date: 20050202
  Transmission Date: 20051028
  Serious: Yes (Hospitalization, Other)
  Sender: FDA-Public Use
  Company Number: JP-BRISTOL-MYERS SQUIBB COMPANY-12857744

PATIENT
  Age: 40 Year
  Sex: Male

DRUGS (6)
  1. EFAVIRENZ CAPS [Suspect]
     Indication: HIV INFECTION
     Route: 048
     Dates: start: 20011012, end: 20030926
  2. EPIVIR [Suspect]
     Indication: HIV INFECTION
     Dosage: RESTARTED 12-OCT-2001, DISOCNTINUED 06-DEC-2001 (56 DAYS)
     Route: 048
     Dates: start: 20000214, end: 20011206
  3. KALETRA [Suspect]
     Indication: HIV INFECTION
     Route: 048
     Dates: start: 20011012, end: 20030926
  4. CERCINE [Concomitant]
     Dates: start: 20001218, end: 20010901
  5. GASTER [Concomitant]
     Indication: STOMACH DISCOMFORT
     Dates: start: 20010511, end: 20030926
  6. LUVOX [Concomitant]
     Dates: start: 20010416, end: 20030926

REACTIONS (10)
  - ASTHENIA [None]
  - DIARRHOEA [None]
  - DIZZINESS [None]
  - GAMMA-GLUTAMYLTRANSFERASE INCREASED [None]
  - HYPERLIPIDAEMIA [None]
  - IRRITABILITY [None]
  - NERVE INJURY [None]
  - NEUROPATHY PERIPHERAL [None]
  - PNEUMONIA BACTERIAL [None]
  - RASH [None]
